FAERS Safety Report 6072657-3 (Version None)
Quarter: 2009Q1

REPORT INFORMATION
  Report Type: 
  Country: None (occurrence: None)
  Receive Date: 20090210
  Receipt Date: 20090129
  Transmission Date: 20090719
  Serious: Yes (Hospitalization)
  Sender: FDA-Public Use
  Company Number: AU-PFIZER INC-2009163762

PATIENT

DRUGS (2)
  1. CHAMPIX [Suspect]
     Dosage: UNK
     Dates: start: 20081226, end: 20090123
  2. VALIUM [Concomitant]
     Dosage: UNK

REACTIONS (3)
  - ANGINA PECTORIS [None]
  - CHEST PAIN [None]
  - PAIN IN EXTREMITY [None]
